FAERS Safety Report 21785376 (Version 1)
Quarter: 2022Q4

REPORT INFORMATION
  Report Type: Spontaneous
  Country: BR (occurrence: BR)
  Receive Date: 20221227
  Receipt Date: 20221227
  Transmission Date: 20230113
  Serious: Yes (Hospitalization)
  Sender: FDA-Public Use
  Company Number: BR-009507513-2209BRA009887

PATIENT
  Age: 31 Year
  Sex: Male
  Weight: 70 kg

DRUGS (14)
  1. LETERMOVIR [Suspect]
     Active Substance: LETERMOVIR
     Indication: Acute myeloid leukaemia
     Dosage: 1 TABLET (240 MG/TABLET) A DAY||QD
     Route: 048
     Dates: start: 202208
  2. LETERMOVIR [Suspect]
     Active Substance: LETERMOVIR
     Dosage: 1 TABLET A DAY
     Route: 048
     Dates: start: 20220906
  3. LETERMOVIR [Suspect]
     Active Substance: LETERMOVIR
     Dosage: 2 TABLETS (240 MG/TABLET) A DAY
     Route: 048
     Dates: start: 20221013
  4. LETERMOVIR [Suspect]
     Active Substance: LETERMOVIR
     Dosage: 1 TABLET (240 MG/TABLET) A DAY||QD
     Route: 048
     Dates: start: 20221108
  5. LETERMOVIR [Suspect]
     Active Substance: LETERMOVIR
     Dosage: 1 TABLET (240 MG/TABLET) A DAY||QD
     Route: 048
  6. LETERMOVIR [Suspect]
     Active Substance: LETERMOVIR
     Dosage: 1 TABLET (480 MG/TABLET) A DAY||QD
     Route: 048
     Dates: start: 20221216
  7. CYCLOSPORINE [Concomitant]
     Active Substance: CYCLOSPORINE
  8. NILOTINIB [Concomitant]
     Active Substance: NILOTINIB
     Dosage: 4 TABLETS OF 200 MG DAILY
  9. BACTRIM [Concomitant]
     Active Substance: SULFAMETHOXAZOLE\TRIMETHOPRIM
  10. ESCITALOPRAM [Concomitant]
     Active Substance: ESCITALOPRAM OXALATE
  11. OLANZAPINE [Concomitant]
     Active Substance: OLANZAPINE
  12. CLONAZEPAM [Concomitant]
     Active Substance: CLONAZEPAM
  13. DIMENHYDRINATE [Concomitant]
     Active Substance: DIMENHYDRINATE
  14. DEXAMETHASONE [Concomitant]
     Active Substance: DEXAMETHASONE

REACTIONS (4)
  - Gastrointestinal infection [Unknown]
  - Weight decreased [Unknown]
  - Product use in unapproved indication [Unknown]
  - Product use issue [Unknown]

NARRATIVE: CASE EVENT DATE: 20220101
